FAERS Safety Report 25345429 (Version 1)
Quarter: 2025Q2

REPORT INFORMATION
  Report Type: Spontaneous
  Country: SA (occurrence: SA)
  Receive Date: 20250522
  Receipt Date: 20250522
  Transmission Date: 20250717
  Serious: Yes (Hospitalization)
  Sender: ACCORD
  Company Number: SA-Accord-485420

PATIENT
  Age: 76 Year
  Sex: Male

DRUGS (6)
  1. AMLODIPINE [Suspect]
     Active Substance: AMLODIPINE BESYLATE
     Indication: Product used for unknown indication
  2. BACTRIM [Suspect]
     Active Substance: SULFAMETHOXAZOLE\TRIMETHOPRIM
     Indication: Wound infection
     Dosage: 800/160 MG TWICE DAILY
     Dates: start: 202312, end: 202312
  3. DESMOPRESSIN [Suspect]
     Active Substance: DESMOPRESSIN
     Indication: Product used for unknown indication
  4. OMEPRAZOLE [Suspect]
     Active Substance: OMEPRAZOLE
     Indication: Product used for unknown indication
  5. BACTRIM [Suspect]
     Active Substance: SULFAMETHOXAZOLE\TRIMETHOPRIM
     Indication: Localised infection
     Dosage: 800/160 MG TWICE DAILY
     Dates: start: 202312, end: 202312
  6. BACTRIM [Suspect]
     Active Substance: SULFAMETHOXAZOLE\TRIMETHOPRIM
     Indication: Soft tissue infection
     Dosage: 800/160 MG TWICE DAILY
     Dates: start: 202312, end: 202312

REACTIONS (2)
  - Hyponatraemia [Recovering/Resolving]
  - Hypochloraemia [Unknown]

NARRATIVE: CASE EVENT DATE: 20231201
